FAERS Safety Report 17493401 (Version 1)
Quarter: 2020Q1

REPORT INFORMATION
  Report Type: Spontaneous
  Country: US (occurrence: US)
  Receive Date: 20200221
  Receipt Date: 20200221
  Transmission Date: 20200409
  Serious: Yes (Hospitalization)
  Sender: FDA-Public Use
  Company Number: None

PATIENT
  Age: 57 Year
  Sex: Female

DRUGS (8)
  1. ESTRING [Concomitant]
     Active Substance: ESTRADIOL
  2. PANTOPRAZOLE [Concomitant]
     Active Substance: PANTOPRAZOLE
  3. OPSUMIT [Suspect]
     Active Substance: MACITENTAN
     Indication: PULMONARY ARTERIAL HYPERTENSION
     Route: 048
     Dates: start: 201909
  4. LAXAPRO [Concomitant]
  5. LASIX [Concomitant]
     Active Substance: FUROSEMIDE
  6. LINSINOPRIL [Concomitant]
     Active Substance: LISINOPRIL
  7. TADALAFIL. [Concomitant]
     Active Substance: TADALAFIL
  8. SPIRONOLACTONE. [Concomitant]
     Active Substance: SPIRONOLACTONE

REACTIONS (4)
  - Myalgia [None]
  - Bronchitis [None]
  - Influenza like illness [None]
  - Asthenia [None]

NARRATIVE: CASE EVENT DATE: 20200127
